FAERS Safety Report 4954600-0 (Version None)
Quarter: 2006Q1

REPORT INFORMATION
  Report Type: 
  Country: None (occurrence: None)
  Receive Date: 20060322
  Receipt Date: 20060308
  Transmission Date: 20060701
  Serious: Yes (Disabling, Other)
  Sender: FDA-Public Use
  Company Number: GB200603001899

PATIENT
  Age: 36 Year
  Sex: Female
  Weight: 52 kg

DRUGS (2)
  1. YENTREVE ( DULOXETINE HYDROCHLORIDE UNKNOWN FORMULATION) UNKNOWN [Suspect]
     Indication: STRESS INCONTINENCE
     Dosage: 40 MG, ORAL
     Route: 048
     Dates: start: 20050216, end: 20050221
  2. CARBAMAZEPINE [Concomitant]

REACTIONS (4)
  - CONDITION AGGRAVATED [None]
  - MUSCLE SPASMS [None]
  - PARESIS [None]
  - TACHYCARDIA [None]
